FAERS Safety Report 17442838 (Version 1)
Quarter: 2020Q1

REPORT INFORMATION
  Report Type: Spontaneous
  Country: US (occurrence: US)
  Receive Date: 20200221
  Receipt Date: 20200221
  Transmission Date: 20200409
  Serious: No
  Sender: FDA-Public Use
  Company Number: US-CELLTRION INC.-2020US017788

PATIENT

DRUGS (1)
  1. TRUXIMA [Suspect]
     Active Substance: RITUXIMAB-ABBS
     Indication: RHEUMATOID ARTHRITIS
     Dosage: 1000 MG EVERY 2 WEEKS, THEN EVERY 6 MONTHS
     Dates: start: 20191216

REACTIONS (1)
  - Unevaluable event [Unknown]
